FAERS Safety Report 7883012-5 (Version None)
Quarter: 2011Q4

REPORT INFORMATION
  Report Type: 
  Country: None (occurrence: None)
  Receive Date: 20111102
  Receipt Date: 20111018
  Transmission Date: 20120403
  Serious: Yes (Life-Threatening, Hospitalization, Disabling)
  Sender: FDA-Public Use
  Company Number: GR-BIOGENIDEC-2010BI003539

PATIENT
  Age: 51 Year
  Sex: Female

DRUGS (3)
  1. DITRUSOL [Concomitant]
  2. TYSABRI [Suspect]
     Indication: MULTIPLE SCLEROSIS
     Route: 042
     Dates: start: 20080401, end: 20091221
  3. CORTICOSTEROIDS (NOS) [Concomitant]
     Dates: end: 20091016

REACTIONS (8)
  - BRAIN OEDEMA [None]
  - MALAISE [None]
  - PROGRESSIVE MULTIFOCAL LEUKOENCEPHALOPATHY [None]
  - SUBDURAL HAEMATOMA [None]
  - FALL [None]
  - MULTIPLE SCLEROSIS RELAPSE [None]
  - DEVICE RELATED INFECTION [None]
  - STUPOR [None]
